FAERS Safety Report 13246641 (Version 2)
Quarter: 2017Q2

REPORT INFORMATION
  Report Type: Spontaneous
  Country: FR (occurrence: FR)
  Receive Date: 20170217
  Receipt Date: 20170407
  Transmission Date: 20170830
  Serious: Yes (Hospitalization)
  Sender: FDA-Public Use
  Company Number: FR-009507513-1702FRA006739

PATIENT
  Age: 40 Year
  Sex: Female

DRUGS (6)
  1. GONADOTROPIN, CHORIONIC [Suspect]
     Active Substance: CHORIOGONADOTROPIN ALFA
     Indication: IN VITRO FERTILISATION
     Dosage: 1 DF, 1 IN 4 DAYS
     Route: 030
     Dates: start: 20160209, end: 20160209
  2. GONADOTROPIN, CHORIONIC [Suspect]
     Active Substance: CHORIOGONADOTROPIN ALFA
     Dosage: 1 DF, 1 IN 4 DAYS
     Route: 030
     Dates: start: 20160213, end: 20160213
  3. OVITRELLE [Suspect]
     Active Substance: CHORIOGONADOTROPIN ALFA
     Indication: OVULATION INDUCTION
     Dosage: 250 MICROGRAM, ONCE
     Route: 058
     Dates: start: 20160207, end: 20160207
  4. MENOPUR [Suspect]
     Active Substance: FOLLITROPIN\LUTEINIZING HORMONE
     Indication: OVULATION INDUCTION
     Dosage: 375 IU, QD, THEN 450 IU QD (1 IN 1 DAY)
     Route: 058
     Dates: start: 201601, end: 20160207
  5. ESTIMA (OXYTOCIN) [Suspect]
     Active Substance: OXYTOCIN
     Indication: IN VITRO FERTILISATION
     Dosage: 200 MG, 3 IN 1 DAY
     Route: 067
     Dates: start: 20160209, end: 20160213
  6. DECAPEPTYL (ACETATE) [Suspect]
     Active Substance: TRIPTORELIN ACETATE
     Indication: OVULATION INDUCTION
     Dosage: 0.025 MG, 1 IN 1 DAY
     Route: 058
     Dates: start: 201601, end: 20160207

REACTIONS (1)
  - Subarachnoid haemorrhage [Recovered/Resolved]

NARRATIVE: CASE EVENT DATE: 20160214
